FAERS Safety Report 12726201 (Version 1)
Quarter: 2016Q3

REPORT INFORMATION
  Report Type: Spontaneous
  Country: US (occurrence: US)
  Receive Date: 20160908
  Receipt Date: 20160908
  Transmission Date: 20161109
  Serious: Yes (Other)
  Sender: FDA-Public Use
  Company Number: US-MYLANLABS-2016M1037975

PATIENT

DRUGS (3)
  1. WARFARIN [Suspect]
     Active Substance: WARFARIN
     Dosage: 56 MG WEEKLY
     Route: 065
     Dates: start: 20110411
  2. WARFARIN [Suspect]
     Active Substance: WARFARIN
     Dosage: 24 MG WEEKLY; LATER, WOMAN MADE DOSING ERROR (56 MG/WEEK)
     Route: 065
     Dates: start: 20110411
  3. WARFARIN [Suspect]
     Active Substance: WARFARIN
     Indication: ATRIAL FIBRILLATION
     Dosage: 2 MG, QD
     Route: 065
     Dates: start: 20110411

REACTIONS (4)
  - Medication error [Recovering/Resolving]
  - International normalised ratio increased [Recovering/Resolving]
  - Vaginal haemorrhage [Recovered/Resolved]
  - Coagulation factor VII level decreased [Recovered/Resolved]
